FAERS Safety Report 7989902-7 (Version None)
Quarter: 2011Q4

REPORT INFORMATION
  Report Type: 
  Country: None (occurrence: None)
  Receive Date: 20111219
  Receipt Date: 20110408
  Transmission Date: 20120403
  Serious: No
  Sender: FDA-Public Use
  Company Number: US-ASTRAZENECA-2011SE20763

PATIENT
  Age: 62 Year
  Sex: Female

DRUGS (19)
  1. FISH OIL [Concomitant]
  2. GLUCOPHAGE [Concomitant]
  3. METHOTREXATE [Concomitant]
  4. FOLIC ACID [Concomitant]
  5. CITALOPRAM [Concomitant]
  6. BACTROBAN [Concomitant]
  7. TRIAMCINOLONE ACETONIDE [Concomitant]
  8. CALCIUM CARBONATE [Concomitant]
  9. ACIDOPHILUS [Concomitant]
  10. CRESTOR [Suspect]
     Route: 048
  11. NEXIUM [Concomitant]
  12. ALLEGRA [Concomitant]
  13. VITAMIN E [Concomitant]
  14. REMICADE [Concomitant]
  15. VITAMIN D [Concomitant]
  16. LEVOTHYROXINE SODIUM [Concomitant]
  17. MULTI-VITAMIN [Concomitant]
  18. SULINDAC [Concomitant]
  19. CALCIUM [Concomitant]

REACTIONS (1)
  - DRUG INTOLERANCE [None]
